FAERS Safety Report 9718305 (Version 1)
Quarter: 2013Q4

REPORT INFORMATION
  Report Type: Spontaneous
  Country: US (occurrence: US)
  Receive Date: 20131125
  Receipt Date: 20131125
  Transmission Date: 20140711
  Serious: No
  Sender: FDA-Public Use
  Company Number: US-VIVUS-2013V1000237

PATIENT
  Age: 63 Year
  Sex: Female

DRUGS (1)
  1. QSYMIA 7.5MG/46MG [Suspect]
     Indication: OBESITY
     Dosage: DAILY DOSE: 1 CAPSULE,
     Route: 048

REACTIONS (2)
  - Depression [Unknown]
  - Inappropriate schedule of drug administration [Unknown]
